FAERS Safety Report 4941547-9 (Version None)
Quarter: 2006Q1

REPORT INFORMATION
  Report Type: 
  Country: None (occurrence: None)
  Receive Date: 20060310
  Receipt Date: 20060310
  Transmission Date: 20060701
  Serious: Yes (Other)
  Sender: FDA-Public Use
  Company Number: None

PATIENT
  Age: 75 Year
  Sex: Female
  Weight: 93.8946 kg

DRUGS (2)
  1. CALAN [Suspect]
     Indication: HYPERTENSION
     Dosage: 1 QD
  2. AVAPRO [Suspect]
     Dosage: 1 QD

REACTIONS (3)
  - HEADACHE [None]
  - NAUSEA [None]
  - RASH [None]
